FAERS Safety Report 23507293 (Version 1)
Quarter: 2024Q1

REPORT INFORMATION
  Report Type: Report from Study
  Country: GB (occurrence: GB)
  Receive Date: 20240209
  Receipt Date: 20240209
  Transmission Date: 20240410
  Serious: Yes (Hospitalization)
  Sender: FDA-Public Use
  Company Number: GB-GLAXOSMITHKLINE-GB2023EME169198

PATIENT

DRUGS (2)
  1. MEPOLIZUMAB [Suspect]
     Active Substance: MEPOLIZUMAB
     Indication: Asthma
     Dosage: 100 MG
     Dates: start: 202309
  2. MEPOLIZUMAB [Suspect]
     Active Substance: MEPOLIZUMAB
     Indication: Asthma
     Dosage: 100 MG
     Dates: start: 202310

REACTIONS (8)
  - Hospitalisation [Unknown]
  - Dyspnoea [Unknown]
  - Dysarthria [Unknown]
  - Cough [Unknown]
  - Cold sweat [Unknown]
  - Wheezing [Unknown]
  - Sputum discoloured [Unknown]
  - Illness [Unknown]
